FAERS Safety Report 4759253-2 (Version None)
Quarter: 2005Q3

REPORT INFORMATION
  Report Type: 
  Country: None (occurrence: None)
  Receive Date: 20050831
  Receipt Date: 20050816
  Transmission Date: 20060218
  Serious: Yes (Death)
  Sender: FDA-Public Use
  Company Number: 216949

PATIENT
  Age: 22 Year
  Sex: Male

DRUGS (5)
  1. MABTHERA (RITUXIMAB) CONC FOR SOLUTION FOR INFUSION [Suspect]
     Indication: CONGENITAL SYPHILITIC OSTEOCHONDRITIS
     Dosage: 750 MG, INTRAVENOUS
     Route: 042
     Dates: start: 20050813, end: 20050813
  2. CYCLOPHOSPHAMIDE [Concomitant]
  3. CORTICOIDS NOS (CORTICOIDS NOS) [Concomitant]
  4. PLASMAPHERESIS (PLASMA PHERESIS) [Concomitant]
  5. IMMUNE GLOBULIN INTRAVENOUS (HUMAN) [Concomitant]

REACTIONS (3)
  - ACUTE RESPIRATORY DISTRESS SYNDROME [None]
  - PULMONARY HAEMORRHAGE [None]
  - RESPIRATORY DISTRESS [None]
